FAERS Safety Report 8339201-9 (Version None)
Quarter: 2012Q2

REPORT INFORMATION
  Report Type: 
  Country: None (occurrence: None)
  Receive Date: 20120502
  Receipt Date: 20120420
  Transmission Date: 20120825
  Serious: Yes (Hospitalization, Other)
  Sender: FDA-Public Use
  Company Number: 2012SP021121

PATIENT
  Age: 58 Year
  Sex: Female

DRUGS (10)
  1. PERINDOPRIL ERBUMINE [Concomitant]
  2. UNASYN [Concomitant]
  3. LASIX [Concomitant]
  4. CIPROFLOXACIN [Concomitant]
  5. PEGASYS [Suspect]
     Indication: HEPATITIS C
     Dosage: 180;135 MCG, QW, SC
     Route: 058
     Dates: start: 20110903, end: 20120310
  6. PEGASYS [Suspect]
     Indication: HEPATITIS C
     Dosage: 180;135 MCG, QW, SC
     Route: 058
     Dates: end: 20120317
  7. PEGASYS [Suspect]
     Indication: HEPATITIS C
     Dosage: 180;135 MCG, QW, SC
     Route: 058
     Dates: start: 20120324
  8. BOCEPREVIR (SCH-503034) [Suspect]
     Indication: HEPATITIS C
     Dosage: 2400 MG, QD, PO
     Route: 048
     Dates: start: 20111001
  9. RIBAVIRIN [Suspect]
     Indication: HEPATITIS C
     Dosage: 1000 MG, PO
     Route: 048
     Dates: start: 20110903
  10. HEPA-MERZ [Concomitant]

REACTIONS (11)
  - HEPATIC ENCEPHALOPATHY [None]
  - PLATELET COUNT DECREASED [None]
  - RED BLOOD CELL COUNT DECREASED [None]
  - HAEMOGLOBIN DECREASED [None]
  - SOMNOLENCE [None]
  - HYPOKALAEMIA [None]
  - WHITE BLOOD CELL COUNT DECREASED [None]
  - CONFUSIONAL STATE [None]
  - HYPONATRAEMIA [None]
  - FACE OEDEMA [None]
  - PANCYTOPENIA [None]
